FAERS Safety Report 13943150 (Version 2)
Quarter: 2017Q4

REPORT INFORMATION
  Report Type: Spontaneous
  Country: IT (occurrence: IT)
  Receive Date: 20170906
  Receipt Date: 20171006
  Transmission Date: 20180320
  Serious: Yes (Death, Life-Threatening, Other)
  Sender: FDA-Public Use
  Company Number: IT-TEVA-803720ACC

PATIENT
  Age: 65 Year
  Sex: Male

DRUGS (13)
  1. METHYLPREDNISOLONE. [Suspect]
     Active Substance: METHYLPREDNISOLONE
     Indication: IMMUNOSUPPRESSION
     Dosage: BEFORE REPERFUSION
     Route: 042
     Dates: start: 2009
  2. MYCOPHENOLATE AUROBINDO [Suspect]
     Active Substance: MYCOPHENOLIC ACID
     Indication: TRANSPLANT REJECTION
     Route: 065
     Dates: start: 200909
  3. TACROLIMUS. [Suspect]
     Active Substance: TACROLIMUS
     Indication: IMMUNOSUPPRESSANT DRUG THERAPY
  4. METHYLPREDNISOLONE. [Suspect]
     Active Substance: METHYLPREDNISOLONE
     Indication: IMMUNOSUPPRESSANT DRUG THERAPY
     Dosage: MAINTAINED AT DIMINISHING
     Route: 042
     Dates: start: 2009
  5. AZATHIOPRINE. [Suspect]
     Active Substance: AZATHIOPRINE
     Indication: IMMUNOSUPPRESSION
     Dosage: 2 MG/KG/DAY, MAINTENANCE THERAPY
     Route: 065
     Dates: start: 200901
  6. CICLOSPORIN [Suspect]
     Active Substance: CYCLOSPORINE
     Indication: IMMUNOSUPPRESSANT DRUG THERAPY
  7. DELTACORTENE [Suspect]
     Active Substance: PREDNISONE
     Indication: IMMUNOSUPPRESSANT DRUG THERAPY
  8. AZATHIOPRINE. [Suspect]
     Active Substance: AZATHIOPRINE
     Indication: IMMUNOSUPPRESSANT DRUG THERAPY
  9. PREDNISONE. [Suspect]
     Active Substance: PREDNISONE
     Indication: IMMUNOSUPPRESSION
     Route: 065
     Dates: start: 200901
  10. PREDNISONE. [Suspect]
     Active Substance: PREDNISONE
     Indication: IMMUNOSUPPRESSANT DRUG THERAPY
  11. CICLOSPORIN [Suspect]
     Active Substance: CYCLOSPORINE
     Indication: IMMUNOSUPPRESSION
     Route: 065
     Dates: start: 200901
  12. DELTACORTENE [Suspect]
     Active Substance: PREDNISONE
     Indication: IMMUNOSUPPRESSION
     Dosage: 25 MILLIGRAM DAILY;
     Route: 048
     Dates: start: 2009
  13. TACROLIMUS. [Suspect]
     Active Substance: TACROLIMUS
     Indication: TRANSPLANT REJECTION
     Route: 065
     Dates: start: 200909

REACTIONS (5)
  - Respiratory disorder [Fatal]
  - Weight decreased [Unknown]
  - Human herpesvirus 8 infection [Fatal]
  - Kaposi^s sarcoma [Fatal]
  - Lung neoplasm [Fatal]

NARRATIVE: CASE EVENT DATE: 2010
